FAERS Safety Report 11778240 (Version 1)
Quarter: 2015Q4

REPORT INFORMATION
  Report Type: Spontaneous
  Country: GB (occurrence: GB)
  Receive Date: 20151125
  Receipt Date: 20151125
  Transmission Date: 20160304
  Serious: Yes (Disabling, Other)
  Sender: FDA-Public Use
  Company Number: GB-TEVA-610272ACC

PATIENT
  Age: 69 Year
  Weight: 64 kg

DRUGS (4)
  1. LOPERAMIDE [Suspect]
     Active Substance: LOPERAMIDE
     Indication: DIARRHOEA
     Route: 048
     Dates: start: 20151027, end: 20151030
  2. CODEINE PHOSPHATE [Concomitant]
     Active Substance: CODEINE PHOSPHATE
     Dosage: 1-2 AT NIGHT 60 TABLET; ONE PER DAY
     Dates: start: 20151102
  3. LEVOTHYROXINE SODIUM. [Concomitant]
     Active Substance: LEVOTHYROXINE SODIUM
     Dosage: 75 MICROGRAM DAILY; IN THE MORNING; DAILY DOSE: 75 MICROGRAM
     Dates: start: 20140915
  4. GALANTAMINE HYDROBROMIDE. [Concomitant]
     Active Substance: GALANTAMINE HYDROBROMIDE
     Dosage: 16 MILLIGRAM DAILY; MODIFIED RELEASE 16 MG DAILY
     Dates: start: 20150703

REACTIONS (1)
  - Muscle spasms [Recovering/Resolving]
